FAERS Safety Report 9737185 (Version 2)
Quarter: 2013Q4

REPORT INFORMATION
  Report Type: Report from Study
  Country: DE (occurrence: DE)
  Receive Date: 20131206
  Receipt Date: 20131214
  Transmission Date: 20140711
  Serious: Yes (Life-Threatening, Hospitalization)
  Sender: FDA-Public Use
  Company Number: DE-ROCHE-1307956

PATIENT
  Age: 84 Year
  Sex: Male
  Weight: 73 kg

DRUGS (10)
  1. METHOXY POLYETHYLENE GLYCOL-EPOETIN BETA [Suspect]
     Indication: RENAL FAILURE CHRONIC
     Route: 058
     Dates: start: 20111124
  2. ACETYLSALICYLIC ACID [Suspect]
     Indication: CORONARY ARTERY DISEASE
     Dosage: FREQUENCY 1-0-0
     Route: 048
     Dates: start: 19960401
  3. CLOPIDOGREL [Suspect]
     Indication: CORONARY ARTERY DISEASE
     Route: 065
     Dates: start: 20121023
  4. TORASEMID [Concomitant]
     Indication: CARDIAC FAILURE
     Dosage: FREQUENCY 1-0-0
     Route: 048
     Dates: end: 20121022
  5. TORASEMID [Concomitant]
     Route: 048
     Dates: start: 20121023
  6. HYDROCHLOROTHIAZIDE [Concomitant]
     Indication: CARDIAC FAILURE
     Dosage: FREQUENCY 1-0-0
     Route: 048
     Dates: start: 20100304
  7. SIMVASTATIN [Concomitant]
     Indication: CORONARY ARTERY DISEASE
     Dosage: FREQUENCY 0-0-1
     Route: 048
     Dates: start: 20101020
  8. FEBUXOSTAT [Concomitant]
     Dosage: FREQUENCY 1-0-0
     Route: 048
     Dates: start: 20101021
  9. AMLODIPIN [Concomitant]
     Route: 065
     Dates: start: 20121023
  10. VALSARTAN [Concomitant]
     Route: 065
     Dates: start: 20120509

REACTIONS (10)
  - Syncope [Recovered/Resolved]
  - Fall [Unknown]
  - Atrioventricular block [Recovered/Resolved]
  - Coronary artery stenosis [Recovered/Resolved]
  - Cardiac tamponade [Recovered/Resolved]
  - Anaemia [Recovered/Resolved]
  - Melaena [Recovered/Resolved]
  - Gastrointestinal haemorrhage [Recovered/Resolved]
  - Gastrointestinal telangiectasia [Recovered/Resolved]
  - Aortic valve stenosis [Recovered/Resolved]
